FAERS Safety Report 16983608 (Version 1)
Quarter: 2019Q4

REPORT INFORMATION
  Report Type: Spontaneous
  Country: US (occurrence: US)
  Receive Date: 20190917
  Receipt Date: 20190917
  Transmission Date: 20200122
  Serious: Yes (Other)
  Sender: FDA-Public Use
  Company Number: None

PATIENT
  Age: 76 Year
  Sex: Male

DRUGS (1)
  1. IMATINIB MESYLATE 400MG [Suspect]
     Active Substance: IMATINIB MESYLATE
     Indication: PROSTATE CANCER
     Route: 048
     Dates: start: 20190327, end: 20190902

REACTIONS (4)
  - Dry skin [None]
  - Chapped lips [None]
  - Nail disorder [None]
  - Rash [None]
